FAERS Safety Report 18550372 (Version 1)
Quarter: 2020Q4

REPORT INFORMATION
  Report Type: Spontaneous
  Country: AU (occurrence: AU)
  Receive Date: 20201126
  Receipt Date: 20201126
  Transmission Date: 20210114
  Serious: Yes (Hospitalization, Other)
  Sender: FDA-Public Use
  Company Number: AU-AMGEN-AUSSP2020189667

PATIENT
  Sex: Female

DRUGS (1)
  1. PROLIA [Suspect]
     Active Substance: DENOSUMAB
     Indication: OSTEOPENIA
     Dosage: 60 MILLIGRAM, Q6MO
     Route: 065

REACTIONS (10)
  - Bone pain [Unknown]
  - Hypertension [Unknown]
  - Off label use [Unknown]
  - Headache [Unknown]
  - Pneumonia [Unknown]
  - Pain [Unknown]
  - Heart rate irregular [Unknown]
  - Viral infection [Unknown]
  - Sinusitis [Unknown]
  - Myalgia [Unknown]

NARRATIVE: CASE EVENT DATE: 2020
